FAERS Safety Report 16732163 (Version 1)
Quarter: 2019Q3

REPORT INFORMATION
  Report Type: Report from Study
  Country: US (occurrence: US)
  Receive Date: 20190822
  Receipt Date: 20190822
  Transmission Date: 20191005
  Serious: Yes (Hospitalization)
  Sender: FDA-Public Use
  Company Number: US-ACTELION-A-NJ2017-154493

PATIENT
  Age: 35 Year
  Sex: Female
  Weight: 74.83 kg

DRUGS (2)
  1. VELETRI [Suspect]
     Active Substance: EPOPROSTENOL
     Indication: PULMONARY ARTERIAL HYPERTENSION
     Dosage: 25.1 NG/KG, PER MIN
     Route: 042
  2. ADCIRCA [Concomitant]
     Active Substance: TADALAFIL

REACTIONS (10)
  - Dyspnoea [Unknown]
  - Staphylococcal infection [Unknown]
  - Product dose omission [Unknown]
  - Abdominal discomfort [Unknown]
  - Chest pain [Unknown]
  - Catheter site infection [Unknown]
  - Catheter site haemorrhage [Unknown]
  - Device related infection [Unknown]
  - Catheter site discharge [Unknown]
  - Catheter site erythema [Unknown]

NARRATIVE: CASE EVENT DATE: 20180829
